FAERS Safety Report 9795964 (Version 2)
Quarter: 2014Q1

REPORT INFORMATION
  Report Type: Spontaneous
  Country: JP (occurrence: JP)
  Receive Date: 20140103
  Receipt Date: 20140103
  Transmission Date: 20141002
  Serious: Yes (Death, Other)
  Sender: FDA-Public Use
  Company Number: JP-SA-2013SA103296

PATIENT
  Age: 66 Year
  Sex: Male
  Weight: 71 kg

DRUGS (56)
  1. ELPLAT [Suspect]
     Indication: COLON CANCER
     Dosage: 78.6 MG/M2
     Route: 041
     Dates: start: 20130424, end: 20130424
  2. ELPLAT [Suspect]
     Indication: COLON CANCER
     Dosage: 78.6 MG/M2
     Route: 041
     Dates: start: 20130508, end: 20130508
  3. ELPLAT [Suspect]
     Indication: COLON CANCER
     Dosage: 78.6 MG/M2
     Route: 041
     Dates: start: 20130522, end: 20130522
  4. ELPLAT [Suspect]
     Indication: COLON CANCER
     Dosage: 78.6 MG/M2
     Route: 041
     Dates: start: 20130605, end: 20130605
  5. ELPLAT [Suspect]
     Indication: COLON CANCER
     Dosage: 78.6 MG/M2
     Route: 041
     Dates: start: 20130703, end: 20130703
  6. ELPLAT [Suspect]
     Indication: COLON CANCER
     Dosage: 78.6 MG/M2
     Route: 041
     Dates: start: 20130619, end: 20130619
  7. ELPLAT [Suspect]
     Indication: COLON CANCER
     Dosage: 78.6 MG/M2
     Route: 041
     Dates: start: 20130717, end: 20130717
  8. ELPLAT [Suspect]
     Indication: COLON CANCER
     Dosage: 78.6 MG/M2
     Route: 041
     Dates: start: 20130731, end: 20130731
  9. ELPLAT [Suspect]
     Indication: COLON CANCER
     Dosage: 78.6 MG/M2
     Route: 041
     Dates: start: 20130814, end: 20130814
  10. ELPLAT [Suspect]
     Indication: COLON CANCER
     Dosage: 78.6 MG/M2
     Route: 041
     Dates: start: 20130828, end: 20130828
  11. ELPLAT [Suspect]
     Indication: COLON CANCER
     Dosage: 78.6 MG/M2
     Route: 041
     Dates: start: 20130911, end: 20130911
  12. ELPLAT [Suspect]
     Indication: COLON CANCER
     Dosage: 78.6 MG/M2
     Route: 041
     Dates: start: 20130925, end: 20130925
  13. CALCIUM LEVOFOLINATE [Suspect]
     Indication: COLON CANCER
     Dosage: 182.4 MG/M2
     Route: 041
     Dates: start: 20130424, end: 20130424
  14. CALCIUM LEVOFOLINATE [Suspect]
     Indication: COLON CANCER
     Dosage: 182.4 MG/M2
     Route: 041
     Dates: start: 20130508, end: 20130508
  15. CALCIUM LEVOFOLINATE [Suspect]
     Indication: COLON CANCER
     Dosage: 182.4 MG/M2
     Route: 041
     Dates: start: 20130522, end: 20130522
  16. CALCIUM LEVOFOLINATE [Suspect]
     Indication: COLON CANCER
     Dosage: 182.4 MG/M2
     Route: 041
     Dates: start: 20130605, end: 20130605
  17. CALCIUM LEVOFOLINATE [Suspect]
     Indication: COLON CANCER
     Dosage: 182.4 MG/M2
     Route: 041
     Dates: start: 20130619, end: 20130619
  18. CALCIUM LEVOFOLINATE [Suspect]
     Indication: COLON CANCER
     Dosage: 182.4 MG/M2
     Route: 041
     Dates: start: 20130703, end: 20130703
  19. CALCIUM LEVOFOLINATE [Suspect]
     Indication: COLON CANCER
     Dosage: 182.4 MG/M2
     Route: 041
     Dates: start: 20130717, end: 20130717
  20. CALCIUM LEVOFOLINATE [Suspect]
     Indication: COLON CANCER
     Dosage: 182.4 MG/M2
     Route: 041
     Dates: start: 20130731, end: 20130731
  21. CALCIUM LEVOFOLINATE [Suspect]
     Indication: COLON CANCER
     Dosage: 182.4 MG/M2
     Route: 041
     Dates: start: 20130814, end: 20130814
  22. CALCIUM LEVOFOLINATE [Suspect]
     Indication: COLON CANCER
     Dosage: 182.4 MG/M2
     Route: 041
     Dates: start: 20130828, end: 20130828
  23. CALCIUM LEVOFOLINATE [Suspect]
     Indication: COLON CANCER
     Dosage: 182.4 MG/M2
     Route: 041
     Dates: start: 20130911, end: 20130911
  24. CALCIUM LEVOFOLINATE [Suspect]
     Indication: COLON CANCER
     Dosage: 182.4 MG/M2
     Route: 041
     Dates: start: 20130925, end: 20130925
  25. 5-FU [Suspect]
     Indication: COLON CANCER
     Dosage: 364.8 MG/M2
     Route: 040
     Dates: start: 20130424, end: 20130424
  26. 5-FU [Suspect]
     Indication: COLON CANCER
     Dosage: 2216.6 MG/M2/D1-2
     Route: 041
     Dates: start: 20130424, end: 20130424
  27. 5-FU [Suspect]
     Indication: COLON CANCER
     Dosage: 2216.6 MG/M2/D1-2
     Route: 041
     Dates: start: 20130508, end: 20130508
  28. 5-FU [Suspect]
     Indication: COLON CANCER
     Dosage: 2216.6 MG/M2/D1-2
     Route: 041
     Dates: start: 20130508, end: 20130508
  29. 5-FU [Suspect]
     Indication: COLON CANCER
     Dosage: 2216.6 MG/M2/D1-2
     Route: 041
     Dates: start: 20130522, end: 20130522
  30. 5-FU [Suspect]
     Indication: COLON CANCER
     Dosage: 2216.6 MG/M2/D1-2
     Route: 041
     Dates: start: 20130522, end: 20130522
  31. 5-FU [Suspect]
     Indication: COLON CANCER
     Dosage: 2216.6 MG/M2/D1-2
     Route: 041
     Dates: start: 20130605, end: 20130605
  32. 5-FU [Suspect]
     Indication: COLON CANCER
     Dosage: 2216.6 MG/M2/D1-2
     Route: 041
     Dates: start: 20130605, end: 20130605
  33. 5-FU [Suspect]
     Indication: COLON CANCER
     Dosage: 2216.6 MG/M2/D1-2
     Route: 041
     Dates: start: 20130619, end: 20130619
  34. 5-FU [Suspect]
     Indication: COLON CANCER
     Dosage: 2216.6 MG/M2/D1-2
     Route: 041
     Dates: start: 20130619, end: 20130619
  35. 5-FU [Suspect]
     Indication: COLON CANCER
     Dosage: 2216.6 MG/M2/D1-2
     Route: 041
     Dates: start: 20130703, end: 20130703
  36. 5-FU [Suspect]
     Indication: COLON CANCER
     Dosage: 2216.6 MG/M2/D1-2
     Route: 041
     Dates: start: 20130703, end: 20130703
  37. 5-FU [Suspect]
     Indication: COLON CANCER
     Dosage: 2216.6 MG/M2/D1-2
     Route: 041
     Dates: start: 20130717, end: 20130717
  38. 5-FU [Suspect]
     Indication: COLON CANCER
     Dosage: 2216.6 MG/M2/D1-2
     Route: 041
     Dates: start: 20130717, end: 20130717
  39. 5-FU [Suspect]
     Indication: COLON CANCER
     Dosage: 2216.6 MG/M2/D1-2
     Route: 041
     Dates: start: 20130731, end: 20130731
  40. 5-FU [Suspect]
     Indication: COLON CANCER
     Dosage: 2216.6 MG/M2/D1-2
     Route: 041
     Dates: start: 20130828, end: 20130828
  41. 5-FU [Suspect]
     Indication: COLON CANCER
     Dosage: 2216.6 MG/M2/D1-2
     Route: 041
     Dates: start: 20130911, end: 20130911
  42. 5-FU [Suspect]
     Indication: COLON CANCER
     Dosage: 2216.6 MG/M2/D1-2
     Route: 041
     Dates: start: 20130911, end: 20130911
  43. 5-FU [Suspect]
     Indication: COLON CANCER
     Dosage: 2216.6 MG/M2/D1-2
     Route: 041
     Dates: start: 20130925, end: 20130925
  44. 5-FU [Suspect]
     Indication: COLON CANCER
     Dosage: 2216.6 MG/M2/D1-2
     Route: 041
     Dates: start: 20130925, end: 20130925
  45. 5-FU [Suspect]
     Indication: COLON CANCER
     Dosage: 2216.6 MG/M2/D1-2
     Route: 041
     Dates: start: 20130731, end: 20130731
  46. 5-FU [Suspect]
     Indication: COLON CANCER
     Dosage: 2216.6 MG/M2/D1-2
     Route: 041
     Dates: start: 20130814, end: 20130814
  47. 5-FU [Suspect]
     Indication: COLON CANCER
     Dosage: 2216.6 MG/M2/D1-2
     Route: 041
     Dates: start: 20130814, end: 20130814
  48. 5-FU [Suspect]
     Indication: COLON CANCER
     Dosage: 2216.6 MG/M2/D1-2
     Route: 041
     Dates: start: 20130828, end: 20130828
  49. MEROPEN [Concomitant]
     Dates: start: 20130930
  50. ALOXI [Concomitant]
     Dates: start: 20130424, end: 20130925
  51. PROEMEND [Concomitant]
     Dates: start: 20130424, end: 20130925
  52. DECADRON [Concomitant]
  53. MEROPEN [Concomitant]
     Dates: start: 20130930
  54. SOLUMEDROL [Concomitant]
  55. PREDONINE [Concomitant]
     Dates: start: 20131004, end: 20131009
  56. OMEPRAL [Concomitant]
     Dates: start: 20131005

REACTIONS (2)
  - Duodenal perforation [Fatal]
  - Pneumonitis [Recovering/Resolving]
